FAERS Safety Report 10760290 (Version 2)
Quarter: 2015Q1

REPORT INFORMATION
  Report Type: Spontaneous
  Country: US (occurrence: US)
  Receive Date: 20150204
  Receipt Date: 20150208
  Transmission Date: 20150721
  Serious: Yes (Other)
  Sender: FDA-Public Use
  Company Number: US-ROCHE-1530052

PATIENT
  Age: 56 Year
  Sex: Female

DRUGS (4)
  1. RITUXAN [Suspect]
     Active Substance: RITUXIMAB
     Indication: WARM TYPE HAEMOLYTIC ANAEMIA
     Dosage: STANDARD DOSE,  4 DOSES
     Route: 042
     Dates: start: 20140612, end: 20140709
  2. PREDNISONE. [Concomitant]
     Active Substance: PREDNISONE
     Indication: SYSTEMIC LUPUS ERYTHEMATOSUS
  3. PREDNISONE. [Concomitant]
     Active Substance: PREDNISONE
     Indication: WARM TYPE HAEMOLYTIC ANAEMIA
     Route: 065
  4. VAGIFEM [Concomitant]
     Active Substance: ESTRADIOL
     Route: 067

REACTIONS (4)
  - Impaired gastric emptying [Not Recovered/Not Resolved]
  - Drug dependence [Unknown]
  - Constipation [Not Recovered/Not Resolved]
  - Abdominal distension [Not Recovered/Not Resolved]

NARRATIVE: CASE EVENT DATE: 20141217
